FAERS Safety Report 4289472-3 (Version None)
Quarter: 2004Q1

REPORT INFORMATION
  Report Type: 
  Country: None (occurrence: None)
  Receive Date: 20040210
  Receipt Date: 20040205
  Transmission Date: 20041129
  Serious: Yes (Other)
  Sender: FDA-Public Use
  Company Number: 200410278DE

PATIENT
  Age: 54 Year
  Sex: Female

DRUGS (3)
  1. LASIX [Suspect]
     Route: 051
     Dates: start: 20040204, end: 20040205
  2. FUROSEMIDE [Concomitant]
  3. CONTRAST MEDIA [Concomitant]

REACTIONS (5)
  - ANAPHYLACTIC SHOCK [None]
  - CHILLS [None]
  - MUSCLE CRAMP [None]
  - NEPHRITIS INTERSTITIAL [None]
  - RENAL FAILURE [None]
